FAERS Safety Report 5895132-5 (Version None)
Quarter: 2008Q3

REPORT INFORMATION
  Report Type: 
  Country: None (occurrence: None)
  Receive Date: 20080924
  Receipt Date: 20080915
  Transmission Date: 20090109
  Serious: Yes (Other)
  Sender: FDA-Public Use
  Company Number: US-WATSON-2008-05502

PATIENT

DRUGS (1)
  1. LIDOCAINE 1% W/ EPINEPHRINE 1:200,000 [Suspect]
     Indication: ANAPHYLAXIS TREATMENT
     Dosage: 1 MG, OF 1 IN 10,000 CONCENTRATION
     Route: 042
     Dates: start: 20080101, end: 20080101

REACTIONS (2)
  - ACCIDENTAL OVERDOSE [None]
  - VENTRICULAR TACHYCARDIA [None]
